FAERS Safety Report 5208360-9 (Version None)
Quarter: 2007Q1

REPORT INFORMATION
  Report Type: 
  Country: None (occurrence: None)
  Receive Date: 20070110
  Receipt Date: 20070110
  Transmission Date: 20070707
  Serious: Yes (Other)
  Sender: FDA-Public Use
  Company Number: None

PATIENT
  Age: 12 Year
  Sex: Female

DRUGS (3)
  1. NATURE'S CURE TWO -PART ACNE TREATMENT [Suspect]
  2. NATURAL HOMEOPATHIC ACNE TABLETS [Suspect]
  3. PLUS -ACNE MEDICATION VANISHING CREAM FOR FEMALES [Concomitant]

REACTIONS (4)
  - DYSPHAGIA [None]
  - OESOPHAGEAL CANDIDIASIS [None]
  - ORAL INTAKE REDUCED [None]
  - PHARMACEUTICAL PRODUCT COMPLAINT [None]
